FAERS Safety Report 4516392-9 (Version None)
Quarter: 2004Q4

REPORT INFORMATION
  Report Type: 
  Country: None (occurrence: None)
  Receive Date: 20041202
  Receipt Date: 20041124
  Transmission Date: 20050328
  Serious: Yes (Disabling)
  Sender: FDA-Public Use
  Company Number: 200421697GDDC

PATIENT
  Age: 73 Year
  Sex: Male
  Weight: 80 kg

DRUGS (5)
  1. RIFAMPICIN [Suspect]
     Indication: ARTHRITIS BACTERIAL
     Route: 048
     Dates: start: 20041015
  2. FLUCLOXACILLIN [Concomitant]
     Route: 042
     Dates: start: 20041015
  3. CODEINE PHOSPHATE [Concomitant]
     Indication: PAIN
     Dosage: DOSE: UNK
     Route: 048
     Dates: start: 20041023, end: 20041026
  4. FUROSEMIDE [Concomitant]
     Indication: RENAL FAILURE CHRONIC
     Route: 048
     Dates: start: 20041021, end: 20041026
  5. DANAPAROID [Concomitant]
     Indication: DEEP VENOUS THROMBOSIS PROPHYLAXIS
     Dosage: DOSE UNIT: UNITS
     Route: 058
     Dates: start: 20041022

REACTIONS (4)
  - PAIN [None]
  - PRURITUS [None]
  - RASH GENERALISED [None]
  - RED MAN SYNDROME [None]
